FAERS Safety Report 6016019-3 (Version None)
Quarter: 2008Q4

REPORT INFORMATION
  Report Type: 
  Country: None (occurrence: None)
  Receive Date: 20081218
  Receipt Date: 20081204
  Transmission Date: 20090506
  Serious: Yes (Life-Threatening, Hospitalization, Disabling)
  Sender: FDA-Public Use
  Company Number: 8040295

PATIENT
  Age: 16 Year
  Sex: Female

DRUGS (6)
  1. KEPPRA [Suspect]
     Indication: EPILEPSY
     Dosage: NI PO
     Route: 048
  2. ISONIAZID [Suspect]
     Indication: EPILEPSY
     Dosage: NI PO
     Route: 048
     Dates: start: 20081029, end: 20080101
  3. CARBAMAZEPINE [Suspect]
     Indication: EPILEPSY
     Dosage: NI PO
     Route: 048
  4. MOXIFLOXACIN HYDROCHLORIDE [Suspect]
     Indication: TUBERCULOSIS
     Dosage: NI PO
     Route: 048
     Dates: start: 20081029, end: 20080101
  5. PYRAZINAMIDE [Suspect]
     Indication: TUBERCULOSIS
     Dosage: NI PO
     Route: 048
     Dates: start: 20081029, end: 20080101
  6. RIFAMPICIN [Suspect]
     Indication: TUBERCULOSIS
     Dosage: NI PO
     Route: 048
     Dates: start: 20081029, end: 20080101

REACTIONS (2)
  - ACUTE HEPATIC FAILURE [None]
  - HEPATIC STEATOSIS [None]
